FAERS Safety Report 6036556-5 (Version None)
Quarter: 2009Q1

REPORT INFORMATION
  Report Type: 
  Country: None (occurrence: None)
  Receive Date: 20090114
  Receipt Date: 20090107
  Transmission Date: 20090719
  Serious: Yes (Other)
  Sender: FDA-Public Use
  Company Number: US-WYE-H07024908

PATIENT
  Age: 54 Year
  Sex: Female
  Weight: 54.8 kg

DRUGS (7)
  1. TEMSIROLIMUS [Suspect]
     Indication: ENDOMETRIAL CANCER
     Route: 042
     Dates: start: 20081104, end: 20081111
  2. TRAMADOL HCL [Concomitant]
  3. COUMADIN [Concomitant]
  4. DICYCLOMINE HCL [Concomitant]
  5. MORPHINE [Concomitant]
  6. BEVACIZUMAB [Suspect]
     Indication: NEOPLASM MALIGNANT
     Dosage: 10MG/KG IV OVER 30-90MINUTES DAY 1 AND DAY 15
     Route: 042
     Dates: start: 20081104, end: 20081104
  7. ADVIL LIQUI-GELS [Concomitant]

REACTIONS (1)
  - BLOOD MAGNESIUM DECREASED [None]
